FAERS Safety Report 7355746-2 (Version None)
Quarter: 2011Q1

REPORT INFORMATION
  Report Type: 
  Country: None (occurrence: None)
  Receive Date: 20110316
  Receipt Date: 20110307
  Transmission Date: 20110831
  Serious: Yes (Disabling)
  Sender: FDA-Public Use
  Company Number: US-CELGENEUS-163-21880-11011396

PATIENT
  Sex: Male

DRUGS (13)
  1. ROSUVASTATIN CALCIUM [Concomitant]
     Dosage: 5 MILLIGRAM
     Route: 048
  2. DIPHENOXYLATE HYDROCHLORIDE [Concomitant]
     Route: 048
  3. MIRTAZAPINE [Concomitant]
     Dosage: 60 MILLIGRAM
     Route: 048
  4. CLONAZEPAM [Concomitant]
     Dosage: 1 MILLIGRAM
     Route: 048
  5. FUROSEMIDE [Concomitant]
     Dosage: 40 MILLIGRAM
     Route: 048
     Dates: start: 20101018
  6. EXENTIDE [Concomitant]
     Dosage: 10 MILLIGRAM
     Route: 058
  7. PROMETHAZINE [Concomitant]
     Dosage: 25 MILLIGRAM
     Route: 048
  8. ASPIRIN [Concomitant]
     Dosage: 325 MILLIGRAM
     Route: 048
     Dates: start: 20100803
  9. REVLIMID [Suspect]
     Indication: MULTIPLE MYELOMA
     Dosage: 10 MILLIGRAM
     Route: 048
     Dates: start: 20101209, end: 20110124
  10. METFORMIN HCL [Concomitant]
     Dosage: 500 MILLIGRAM
     Route: 048
  11. OMEPRAZOLE [Concomitant]
     Dosage: 20 MILLIGRAM
     Route: 048
     Dates: start: 20100729
  12. ONDANSETRON HCL [Concomitant]
     Dosage: 8 MILLIGRAM
     Route: 048
     Dates: start: 20100729
  13. ESCITALOPRAM OXALATE [Concomitant]
     Dosage: 20 MILLIGRAM
     Route: 048

REACTIONS (2)
  - NIGHTMARE [None]
  - INSOMNIA [None]
